FAERS Safety Report 18278177 (Version 1)
Quarter: 2020Q3

REPORT INFORMATION
  Report Type: Spontaneous
  Country: US (occurrence: US)
  Receive Date: 20200917
  Receipt Date: 20200917
  Transmission Date: 20201103
  Serious: No
  Sender: FDA-Public Use
  Company Number: US-CIRCASSIA PHARMACEUTICALS INC-2019US010413

PATIENT
  Sex: Female
  Weight: 53 kg

DRUGS (2)
  1. SYMBICORT [Suspect]
     Active Substance: BUDESONIDE\FORMOTEROL FUMARATE DIHYDRATE
     Indication: CHRONIC OBSTRUCTIVE PULMONARY DISEASE
     Dosage: 160/4.5MCG 1 PUFF TWICE A DAY / DOSE 160/4.5MCG 2 PUFFS TWICE A DAY
     Route: 055
     Dates: start: 201908
  2. TUDORZA PRESSAIR [Suspect]
     Active Substance: ACLIDINIUM BROMIDE
     Indication: CHRONIC OBSTRUCTIVE PULMONARY DISEASE
     Dosage: 400 UG, BID
     Route: 055
     Dates: end: 20190801

REACTIONS (6)
  - Fatigue [Not Recovered/Not Resolved]
  - Dyspnoea [Not Recovered/Not Resolved]
  - Malaise [Not Recovered/Not Resolved]
  - Nervousness [Not Recovered/Not Resolved]
  - Device issue [Unknown]
  - Lung disorder [Not Recovered/Not Resolved]
